FAERS Safety Report 25430904 (Version 1)
Quarter: 2025Q2

REPORT INFORMATION
  Report Type: Spontaneous
  Country: RU (occurrence: RU)
  Receive Date: 20250612
  Receipt Date: 20250612
  Transmission Date: 20250716
  Serious: Yes (Other)
  Sender: SANDOZ
  Company Number: RU-SANDOZ-SDZ2025RU040533

PATIENT
  Sex: Female

DRUGS (1)
  1. ENALAPRIL [Suspect]
     Active Substance: ENALAPRIL
     Indication: Hypotension
     Route: 065
     Dates: start: 20250605

REACTIONS (2)
  - Hypertension [Unknown]
  - Product prescribing issue [Unknown]
